FAERS Safety Report 18431104 (Version 3)
Quarter: 2020Q4

REPORT INFORMATION
  Report Type: Spontaneous
  Country: US (occurrence: US)
  Receive Date: 20201027
  Receipt Date: 20201221
  Transmission Date: 20210114
  Serious: Yes (Hospitalization, Other)
  Sender: FDA-Public Use
  Company Number: US-COVIS PHARMA B.V.-2020COV00496

PATIENT
  Age: 71 Year
  Sex: Female
  Weight: 52.16 kg

DRUGS (12)
  1. VITAMIN B12 [Concomitant]
     Active Substance: CYANOCOBALAMIN
  2. ASA [Concomitant]
     Active Substance: ASPIRIN
     Dosage: 81 MG, 1X/DAY
  3. PENICILLIN [Suspect]
     Active Substance: PENICILLIN
  4. OMNARIS [Suspect]
     Active Substance: CICLESONIDE
     Indication: NASAL CONGESTION
  5. AZELASTINE HCL [Suspect]
     Active Substance: AZELASTINE HYDROCHLORIDE
  6. UNSPECIFIED THYROID MEDICATION [Suspect]
     Active Substance: UNSPECIFIED INGREDIENT
  7. VITAMIN D [Concomitant]
     Active Substance: VITAMIN D NOS
  8. TRIAMTERENE AND HYDROCHLOROTHIAZIDE [Suspect]
     Active Substance: HYDROCHLOROTHIAZIDE\TRIAMTERENE
     Indication: HYPERTENSION
     Dosage: UNK
     Dates: start: 201212, end: 201212
  9. ATENOLOL. [Concomitant]
     Active Substance: ATENOLOL
     Dosage: 25 MG, 1X/DAY
  10. METHIMAZOLE. [Concomitant]
     Active Substance: METHIMAZOLE
     Dosage: 15 MG, 1X/DAY
     Route: 048
  11. OMNARIS [Suspect]
     Active Substance: CICLESONIDE
     Indication: SINUS DISORDER
  12. OMNARIS [Suspect]
     Active Substance: CICLESONIDE
     Indication: HYPERSENSITIVITY
     Dosage: UNK

REACTIONS (29)
  - Lower respiratory tract infection [Unknown]
  - Hyponatraemia [Recovered/Resolved]
  - Oedema peripheral [Unknown]
  - Nasal discomfort [Unknown]
  - Mastoiditis [Unknown]
  - Hypovolaemia [Recovered/Resolved]
  - Breath sounds abnormal [Unknown]
  - Feeling abnormal [Recovered/Resolved]
  - Chills [Recovered/Resolved]
  - Sinusitis [Unknown]
  - Thyroid disorder [Unknown]
  - Dental restoration failure [Unknown]
  - Tooth infection [Unknown]
  - Arthritis [Not Recovered/Not Resolved]
  - Hypophagia [Recovering/Resolving]
  - Dizziness [Recovering/Resolving]
  - Back pain [Unknown]
  - Nasal disorder [Unknown]
  - Endodontic procedure [Unknown]
  - Overdose [Unknown]
  - Anxiety [Not Recovered/Not Resolved]
  - Fluid retention [Unknown]
  - Constipation [Unknown]
  - Cataract [Unknown]
  - Basedow^s disease [Unknown]
  - Hypertension [Recovered/Resolved]
  - Electrocardiogram abnormal [Unknown]
  - Ear infection [Unknown]
  - Gilbert^s syndrome [Unknown]

NARRATIVE: CASE EVENT DATE: 201212
